FAERS Safety Report 18857989 (Version 1)
Quarter: 2021Q1

REPORT INFORMATION
  Report Type: Spontaneous
  Country: JP (occurrence: JP)
  Receive Date: 20210208
  Receipt Date: 20210208
  Transmission Date: 20210420
  Serious: Yes (Hospitalization, Other)
  Sender: FDA-Public Use
  Company Number: JP-TEVA-2021-JP-000468J

PATIENT
  Age: 69 Year
  Sex: Male

DRUGS (1)
  1. LANSOPRAZOLE OD TABLET 30MG TAKEDA TEVA [Suspect]
     Active Substance: LANSOPRAZOLE
     Indication: DYSPEPSIA
     Dosage: 30 MILLIGRAM DAILY;
     Route: 048
     Dates: start: 20201024, end: 20201107

REACTIONS (4)
  - Therapy cessation [Unknown]
  - Melaena [Unknown]
  - Large intestinal haemorrhage [Recovered/Resolved]
  - Product use in unapproved indication [Unknown]

NARRATIVE: CASE EVENT DATE: 20201024
